FAERS Safety Report 21008362 (Version 1)
Quarter: 2022Q2

REPORT INFORMATION
  Report Type: Other
  Country: IT (occurrence: IT)
  Receive Date: 20220627
  Receipt Date: 20220627
  Transmission Date: 20220721
  Serious: Yes (Hospitalization, Other)
  Sender: FDA-Public Use
  Company Number: IT-CELLTRION INC.-2022IT008978

PATIENT

DRUGS (7)
  1. TRASTUZUMAB [Suspect]
     Active Substance: TRASTUZUMAB
     Indication: Breast cancer
     Dosage: 360 MG (MOST RECENT DOSE ADMINISTERED ON 21/APR/2022, 28/APR/2022 DOSE 6 MG/KG)
     Route: 041
     Dates: start: 20220204, end: 20220428
  2. TRASTUZUMAB [Suspect]
     Active Substance: TRASTUZUMAB
     Indication: Breast cancer metastatic
  3. PERJETA [Suspect]
     Active Substance: PERTUZUMAB
     Indication: Breast cancer
     Dosage: 420 MG (MOST RECENT DOSE ADMINISTERED ON 21/APR/2022, 28/APR/2022)
     Route: 042
     Dates: start: 20220204, end: 20220428
  4. PERJETA [Suspect]
     Active Substance: PERTUZUMAB
     Indication: Breast cancer metastatic
  5. TAXOL [Suspect]
     Active Substance: PACLITAXEL
     Indication: Breast cancer metastatic
     Dosage: 80 MG (MOST RECENT DOSE ADMINISTERED ON 21/APR/2022,)
     Route: 065
     Dates: start: 20220204
  6. TAXOL [Suspect]
     Active Substance: PACLITAXEL
     Indication: Breast cancer
  7. TAXOTERE [Suspect]
     Active Substance: DOCETAXEL
     Indication: Breast cancer
     Dosage: 75 MG/M2 (MOST RECENT DOSE ADMINISTERED ON 28/APR/2022)
     Route: 042
     Dates: start: 20220204, end: 20220428

REACTIONS (3)
  - Cardiac failure [Recovered/Resolved]
  - Cardiac failure [Recovering/Resolving]
  - Underdose [Unknown]

NARRATIVE: CASE EVENT DATE: 20220428
